FAERS Safety Report 9730199 (Version 1)
Quarter: 2013Q4

REPORT INFORMATION
  Report Type: Spontaneous
  Country: US (occurrence: US)
  Receive Date: 20131204
  Receipt Date: 20131204
  Transmission Date: 20140711
  Serious: No
  Sender: FDA-Public Use
  Company Number: US-ENDO PHARMACEUTICALS INC.-APIR20130003

PATIENT
  Sex: Female

DRUGS (1)
  1. ALPRAZOLAM IR TABLETS 0.25MG [Suspect]
     Indication: PRODUCT USED FOR UNKNOWN INDICATION
     Dosage: 1/2 TABLET
     Route: 048

REACTIONS (2)
  - Hepatic pain [Not Recovered/Not Resolved]
  - Headache [Not Recovered/Not Resolved]
